FAERS Safety Report 7177755-9 (Version None)
Quarter: 2010Q4

REPORT INFORMATION
  Report Type: 
  Country: None (occurrence: None)
  Receive Date: 20101220
  Receipt Date: 20101208
  Transmission Date: 20110411
  Serious: Yes (Death)
  Sender: FDA-Public Use
  Company Number: GXKR2010FR13944

PATIENT
  Age: 72 Year
  Sex: Male

DRUGS (5)
  1. FLUDARABINE (NGX) [Suspect]
     Indication: CHRONIC LYMPHOCYTIC LEUKAEMIA
     Route: 065
  2. PREDNISOLONE [Suspect]
     Indication: CHRONIC LYMPHOCYTIC LEUKAEMIA
     Dosage: 60 MG/DAY
  3. PREDNISOLONE [Suspect]
     Dosage: 10 MG/DAY
  4. CYCLOPHOSPHAMIDE [Concomitant]
     Dosage: 50 MG, BID
     Route: 048
  5. RITUXIMAB [Concomitant]
     Dosage: 375 MG/M2, UNK

REACTIONS (2)
  - AGRANULOCYTOSIS [None]
  - GASTRIC HAEMORRHAGE [None]
